FAERS Safety Report 5392880-0 (Version None)
Quarter: 2007Q3

REPORT INFORMATION
  Report Type: 
  Country: None (occurrence: None)
  Receive Date: 20070721
  Receipt Date: 20070709
  Transmission Date: 20080115
  Serious: Yes (Other)
  Sender: FDA-Public Use
  Company Number: BE-PFIZER INC-2007057898

PATIENT
  Age: 74 Year
  Sex: Male

DRUGS (2)
  1. PREGABALIN [Suspect]
     Indication: PHANTOM PAIN
  2. PREGABALIN [Suspect]
     Dosage: DAILY DOSE:300MG

REACTIONS (1)
  - CREATININE RENAL CLEARANCE DECREASED [None]
